FAERS Safety Report 15547760 (Version 1)
Quarter: 2018Q4

REPORT INFORMATION
  Report Type: Spontaneous
  Country: US (occurrence: US)
  Receive Date: 20181024
  Receipt Date: 20181024
  Transmission Date: 20190205
  Serious: Yes (Hospitalization)
  Sender: FDA-Public Use
  Company Number: None

PATIENT
  Sex: Male

DRUGS (6)
  1. HUMIRA [Suspect]
     Active Substance: ADALIMUMAB
     Indication: ANKYLOSING SPONDYLITIS
     Dosage: ?          OTHER FREQUENCY:EVERY OTHER WEEK;?
     Route: 058
     Dates: start: 20170502
  2. OPIUM. [Concomitant]
     Active Substance: OPIUM
  3. CARISOPRODOL. [Concomitant]
     Active Substance: CARISOPRODOL
  4. TEMAZEPAM. [Concomitant]
     Active Substance: TEMAZEPAM
  5. HUMIRA [Suspect]
     Active Substance: ADALIMUMAB
     Indication: COLITIS ULCERATIVE
     Dosage: ?          OTHER FREQUENCY:EVERY OTHER WEEK;?
     Route: 058
     Dates: start: 20170502
  6. BETAMETH [Concomitant]

REACTIONS (2)
  - Colitis ulcerative [None]
  - Condition aggravated [None]
